FAERS Safety Report 6506861-4 (Version None)
Quarter: 2009Q4

REPORT INFORMATION
  Report Type: 
  Country: None (occurrence: None)
  Receive Date: 20091221
  Receipt Date: 20091201
  Transmission Date: 20100525
  Serious: Yes (Other)
  Sender: FDA-Public Use
  Company Number: US-SANOFI-AVENTIS-2009SA005706

PATIENT
  Age: 68 Year
  Sex: Male

DRUGS (8)
  1. PLAVIX [Suspect]
     Route: 048
     Dates: start: 20060101
  2. PLAVIX [Suspect]
     Route: 048
     Dates: start: 20060101
  3. PRILOSEC [Concomitant]
  4. PEPCID [Concomitant]
  5. ZANTAC [Concomitant]
  6. NIASPAN [Concomitant]
  7. ASPIRIN [Concomitant]
  8. ZEGERID [Concomitant]

REACTIONS (4)
  - HAEMATOMA [None]
  - POST PROCEDURAL COMPLICATION [None]
  - VASCULAR OCCLUSION [None]
  - VASCULAR PSEUDOANEURYSM [None]
